FAERS Safety Report 6818324-7 (Version None)
Quarter: 2010Q3

REPORT INFORMATION
  Report Type: 
  Country: None (occurrence: None)
  Receive Date: 20100706
  Receipt Date: 20071010
  Transmission Date: 20110219
  Serious: Yes (Hospitalization)
  Sender: FDA-Public Use
  Company Number: US-PFIZER INC-2007049283

PATIENT
  Sex: Female

DRUGS (2)
  1. ZITHROMAX [Suspect]
     Indication: TONSILLITIS
     Route: 048
     Dates: start: 19990908
  2. GENTAMICIN [Concomitant]
     Indication: CONJUNCTIVITIS
     Route: 047
     Dates: start: 19990911

REACTIONS (1)
  - TOXIC EPIDERMAL NECROLYSIS [None]
